FAERS Safety Report 22318139 (Version 1)
Quarter: 2023Q2

REPORT INFORMATION
  Report Type: Spontaneous
  Country: US (occurrence: US)
  Receive Date: 20230515
  Receipt Date: 20230515
  Transmission Date: 20230721
  Serious: No
  Sender: FDA-Public Use
  Company Number: US-UCBSA-2023002422

PATIENT
  Sex: Female

DRUGS (1)
  1. NEUPRO [Suspect]
     Active Substance: ROTIGOTINE
     Indication: Restless legs syndrome
     Dosage: 2 MILLIGRAM, UNK
     Route: 062
     Dates: start: 20220101

REACTIONS (2)
  - Application site pruritus [Not Recovered/Not Resolved]
  - Application site mass [Not Recovered/Not Resolved]

NARRATIVE: CASE EVENT DATE: 20221112
